FAERS Safety Report 13665587 (Version 1)
Quarter: 2017Q2

REPORT INFORMATION
  Report Type: Spontaneous
  Country: US (occurrence: US)
  Receive Date: 20170619
  Receipt Date: 20170619
  Transmission Date: 20170830
  Serious: No
  Sender: FDA-Public Use
  Company Number: US-BAYER-2017-117139

PATIENT
  Sex: Female

DRUGS (1)
  1. MIRALAX [Suspect]
     Active Substance: POLYETHYLENE GLYCOL 3350
     Dosage: 1 DF, BID
     Route: 065

REACTIONS (4)
  - Incorrect drug administration duration [Unknown]
  - Product use issue [Unknown]
  - Back pain [Not Recovered/Not Resolved]
  - Inappropriate prescribing [Unknown]

NARRATIVE: CASE EVENT DATE: 201706
